FAERS Safety Report 5211454-5 (Version None)
Quarter: 2006Q4

REPORT INFORMATION
  Report Type: 
  Country: None (occurrence: None)
  Receive Date: 20061115
  Receipt Date: 20060730
  Transmission Date: 20070319
  Serious: No
  Sender: FDA-Public Use
  Company Number: 200616424US

PATIENT
  Sex: Female

DRUGS (3)
  1. APIDRA [Suspect]
  2. APIDRA [Suspect]
  3. OPTICLIK [Suspect]

REACTIONS (3)
  - BLOOD GLUCOSE DECREASED [None]
  - HYPOGLYCAEMIA [None]
  - OVERDOSE [None]
